FAERS Safety Report 7516121-0 (Version None)
Quarter: 2011Q2

REPORT INFORMATION
  Report Type: 
  Country: None (occurrence: None)
  Receive Date: 20110601
  Receipt Date: 20110524
  Transmission Date: 20111010
  Serious: Yes (Hospitalization)
  Sender: FDA-Public Use
  Company Number: FR-ROCHE-779675

PATIENT
  Sex: Female

DRUGS (11)
  1. GLUCOPHAGE [Suspect]
     Route: 048
  2. DIAMICRON [Suspect]
     Route: 048
  3. ESIDRIX [Suspect]
     Route: 048
  4. HERCEPTIN [Suspect]
     Indication: BREAST CANCER
     Dosage: FREQUENCY:ONCE CYCLE 1
     Route: 042
     Dates: start: 20101217
  5. HERCEPTIN [Suspect]
     Dosage: CYCLE 2
     Route: 042
     Dates: start: 20110107, end: 20110107
  6. TAXOTERE [Suspect]
     Dosage: CYCLE 2
     Route: 042
     Dates: start: 20110107
  7. EPIRUBICIN [Concomitant]
  8. CYCLOPHOSPHAMIDE [Concomitant]
  9. TAXOTERE [Suspect]
     Indication: BREAST CANCER
     Dosage: FREQUENCY:ONCE, CYCLE 1
     Route: 042
     Dates: start: 20101217
  10. ENALAPRIL MALEATE [Suspect]
     Route: 048
  11. CYMBALTA [Suspect]
     Indication: MAJOR DEPRESSION
     Route: 048

REACTIONS (2)
  - OEDEMA [None]
  - PALMAR-PLANTAR ERYTHRODYSAESTHESIA SYNDROME [None]
